FAERS Safety Report 15654007 (Version 1)
Quarter: 2018Q4

REPORT INFORMATION
  Report Type: Spontaneous
  Country: GB (occurrence: GB)
  Receive Date: 20181125
  Receipt Date: 20181125
  Transmission Date: 20190205
  Serious: Yes (Death, Hospitalization)
  Sender: FDA-Public Use
  Company Number: GB-BAYER-2018-216116

PATIENT
  Age: 71 Year
  Sex: Male

DRUGS (2)
  1. HEPARIN [Interacting]
     Active Substance: HEPARIN SODIUM
  2. ACETYLSALICYLIC ACID({=100 MG) [Suspect]
     Active Substance: ASPIRIN
     Indication: ISCHAEMIC HEART DISEASE PROPHYLAXIS
     Dosage: UNK

REACTIONS (11)
  - Subdural haematoma [Fatal]
  - Wound haemorrhage [None]
  - Haemoptysis [None]
  - Labelled drug-drug interaction medication error [None]
  - Hydrocephalus [None]
  - Intraventricular haemorrhage [None]
  - Haemothorax [None]
  - Skin angiosarcoma [None]
  - Arteriovenous fistula site haematoma [None]
  - Brain herniation [None]
  - Thrombocytopenia [None]
